FAERS Safety Report 18627596 (Version 1)
Quarter: 2020Q4

REPORT INFORMATION
  Report Type: Spontaneous
  Country: ES (occurrence: ES)
  Receive Date: 20201217
  Receipt Date: 20201217
  Transmission Date: 20210114
  Serious: Yes (Death, Other)
  Sender: FDA-Public Use
  Company Number: ES-MYLANLABS-2020M1101584

PATIENT
  Age: 46 Year
  Sex: Female

DRUGS (20)
  1. PALBOCICLIB [Suspect]
     Active Substance: PALBOCICLIB
     Dosage: UNK UNK, CYCLE (1ST CYCLE)
     Route: 048
     Dates: start: 20180831
  2. FULVESTRANT. [Suspect]
     Active Substance: FULVESTRANT
     Indication: PRODUCT USED FOR UNKNOWN INDICATION
     Dosage: UNK UNK, CYCLE  (1ST CYCLE)
     Route: 030
     Dates: start: 20180831
  3. FULVESTRANT. [Suspect]
     Active Substance: FULVESTRANT
     Dosage: UNK UNK, CYCLE
     Route: 030
     Dates: start: 20190510
  4. FULVESTRANT. [Suspect]
     Active Substance: FULVESTRANT
     Dosage: UNK UNK, CYCLE (10TH CYCLE)
     Route: 030
     Dates: start: 20190705
  5. PALBOCICLIB [Suspect]
     Active Substance: PALBOCICLIB
     Dosage: UNK UNK, CYCLE (14TH CYCLE)
     Route: 048
     Dates: start: 20190920
  6. TAXOL [Concomitant]
     Active Substance: PACLITAXEL
     Dosage: UNK(CYCLE DAY +1)
     Dates: start: 20200221
  7. TAXOL [Concomitant]
     Active Substance: PACLITAXEL
     Dosage: UNK(CYCLE DAY +15)
     Dates: start: 20191118
  8. FULVESTRANT. [Suspect]
     Active Substance: FULVESTRANT
     Dosage: UNK UNK, CYCLE (4TH CYCLE)
     Route: 030
     Dates: start: 20181123
  9. PALBOCICLIB [Suspect]
     Active Substance: PALBOCICLIB
     Dosage: UNK UNK, CYCLE (4TH CYCLE)
     Route: 048
     Dates: start: 20181123
  10. PALBOCICLIB [Suspect]
     Active Substance: PALBOCICLIB
     Dosage: UNK UNK, CYCLE (12TH CYCLE)
     Route: 048
     Dates: start: 20190705
  11. FULVESTRANT. [Suspect]
     Active Substance: FULVESTRANT
     Dosage: UNK UNK, CYCLE (12TH CYCLE)
     Route: 030
     Dates: start: 20190920
  12. PALBOCICLIB [Suspect]
     Active Substance: PALBOCICLIB
     Indication: PRODUCT USED FOR UNKNOWN INDICATION
     Dosage: UNK
     Route: 048
  13. PALBOCICLIB [Suspect]
     Active Substance: PALBOCICLIB
     Dosage: UNK UNK, CYCLE (7TH CYCLE)
     Route: 048
     Dates: start: 20190215
  14. TAXOL [Concomitant]
     Active Substance: PACLITAXEL
     Dosage: UNK(CYCLE DAY +1)
     Dates: start: 20191018
  15. PALBOCICLIB [Suspect]
     Active Substance: PALBOCICLIB
     Dosage: UNK UNK, CYCLE (10TH CYCLE)
     Route: 048
     Dates: start: 20190510
  16. METFORMIN [Concomitant]
     Active Substance: METFORMIN HYDROCHLORIDE
     Dosage: UNK
     Dates: start: 201904
  17. TAXOL [Concomitant]
     Active Substance: PACLITAXEL
     Dosage: UNK(CYCLE DAY +15)
     Dates: start: 20191227
  18. ZOLEDRONIC ACID [Suspect]
     Active Substance: ZOLEDRONIC ACID
     Indication: PRODUCT USED FOR UNKNOWN INDICATION
     Dosage: UNK
     Dates: start: 20180831
  19. FULVESTRANT. [Suspect]
     Active Substance: FULVESTRANT
     Dosage: UNK UNK, CYCLE (7TH CYCLE)
     Route: 030
     Dates: start: 20190215
  20. FULVESTRANT. [Suspect]
     Active Substance: FULVESTRANT
     Dosage: UNK UNK, CYCLE (14TH CYCLE)
     Route: 030
     Dates: start: 20190920

REACTIONS (10)
  - Asthenia [Unknown]
  - Anaemia [Unknown]
  - Death [Fatal]
  - Metastases to lung [Unknown]
  - Skin toxicity [Unknown]
  - Metastases to liver [Unknown]
  - Seizure [Unknown]
  - Metastases to retroperitoneum [Unknown]
  - Metastases to kidney [Unknown]
  - Blood glucose increased [Unknown]

NARRATIVE: CASE EVENT DATE: 20190215
